FAERS Safety Report 17392622 (Version 2)
Quarter: 2020Q1

REPORT INFORMATION
  Report Type: Spontaneous
  Country: US (occurrence: US)
  Receive Date: 20200207
  Receipt Date: 20200309
  Transmission Date: 20200409
  Serious: No
  Sender: FDA-Public Use
  Company Number: US-ACTELION-A-NJ2020-201037

PATIENT
  Sex: Female
  Weight: 73.47 kg

DRUGS (3)
  1. AMLODIPINE [Concomitant]
     Active Substance: AMLODIPINE BESYLATE
  2. OPSUMIT [Suspect]
     Active Substance: MACITENTAN
     Indication: PULMONARY HYPERTENSION
     Dosage: 10 MG, QD
     Route: 048
  3. TYVASO [Concomitant]
     Active Substance: TREPROSTINIL

REACTIONS (8)
  - Skin ulcer [Unknown]
  - Cataract [Unknown]
  - Seasonal allergy [Unknown]
  - Pain in extremity [Unknown]
  - Anaemia [Unknown]
  - Scleroderma [Unknown]
  - Vision blurred [Unknown]
  - Vitamin B12 decreased [Unknown]
